FAERS Safety Report 5460642-1 (Version None)
Quarter: 2007Q3

REPORT INFORMATION
  Report Type: 
  Country: None (occurrence: None)
  Receive Date: 20070919
  Receipt Date: 20070907
  Transmission Date: 20080115
  Serious: Yes (Other)
  Sender: FDA-Public Use
  Company Number: US-PFIZER INC-2007077039

PATIENT
  Sex: Female
  Weight: 79.4 kg

DRUGS (4)
  1. CHANTIX [Suspect]
     Indication: SMOKING CESSATION THERAPY
  2. PLAVIX [Concomitant]
  3. ASPIRIN [Concomitant]
  4. ZETIA [Concomitant]

REACTIONS (3)
  - BRONCHITIS [None]
  - MEDICATION ERROR [None]
  - NEUROLOGICAL SYMPTOM [None]
